FAERS Safety Report 4390766-1 (Version None)
Quarter: 2004Q3

REPORT INFORMATION
  Report Type: 
  Country: None (occurrence: None)
  Receive Date: 20040706
  Receipt Date: 20040706
  Transmission Date: 20050211
  Serious: Yes (Hospitalization)
  Sender: FDA-Public Use
  Company Number: None

PATIENT
  Age: 69 Year
  Sex: Male

DRUGS (1)
  1. VITAMIN K TAB [Suspect]
     Indication: EPISTAXIS
     Dosage: 100 MG ONCE IV
     Route: 042
     Dates: start: 20040327, end: 20040327

REACTIONS (1)
  - CARDIAC ARREST [None]
